FAERS Safety Report 7397163-5 (Version None)
Quarter: 2011Q2

REPORT INFORMATION
  Report Type: 
  Country: None (occurrence: None)
  Receive Date: 20110406
  Receipt Date: 20110330
  Transmission Date: 20111010
  Serious: Yes (Other)
  Sender: FDA-Public Use
  Company Number: B0710659A

PATIENT
  Age: 17 Year
  Sex: Female

DRUGS (1)
  1. AVAMYS [Suspect]
     Route: 065

REACTIONS (1)
  - THROMBOCYTOPENIA [None]
